FAERS Safety Report 10040844 (Version 1)
Quarter: 2014Q1

REPORT INFORMATION
  Report Type: Spontaneous
  Country: US (occurrence: US)
  Receive Date: 20140327
  Receipt Date: 20140327
  Transmission Date: 20141002
  Serious: No
  Sender: FDA-Public Use
  Company Number: US-PFIZER INC-2014082222

PATIENT
  Sex: Female

DRUGS (3)
  1. AMLODIPINE BESILATE [Suspect]
     Dosage: UNK
  2. AZOPT [Suspect]
     Dosage: UNK
  3. PRAVASTATIN [Suspect]
     Dosage: UNK

REACTIONS (3)
  - Myalgia [Unknown]
  - Pain [Unknown]
  - Vertebral osteophyte [Unknown]
